FAERS Safety Report 5567095-3 (Version None)
Quarter: 2007Q4

REPORT INFORMATION
  Report Type: 
  Country: None (occurrence: None)
  Receive Date: 20071219
  Receipt Date: 20061002
  Transmission Date: 20080405
  Serious: Yes (Death)
  Sender: FDA-Public Use
  Company Number: DE-ROCHE-465765

PATIENT
  Sex: Male

DRUGS (1)
  1. VALCYTE [Suspect]
     Indication: RENAL TRANSPLANT
     Route: 048

REACTIONS (2)
  - DRUG ADMINISTRATION ERROR [None]
  - MALIGNANT NEOPLASM PROGRESSION [None]
